FAERS Safety Report 5576025-X (Version None)
Quarter: 2007Q4

REPORT INFORMATION
  Report Type: 
  Country: None (occurrence: None)
  Receive Date: 20071228
  Receipt Date: 20070920
  Transmission Date: 20080405
  Serious: No
  Sender: FDA-Public Use
  Company Number: A0683358A

PATIENT
  Age: 76 Year
  Sex: Female

DRUGS (12)
  1. ADVAIR DISKUS 100/50 [Suspect]
     Indication: CHRONIC OBSTRUCTIVE PULMONARY DISEASE
     Route: 055
     Dates: start: 20040101
  2. FLUCONAZOLE [Concomitant]
  3. UNKNOWN MEDICATION [Concomitant]
  4. DIGOXIN [Concomitant]
  5. DIOVAN [Concomitant]
  6. SIMVASTATIN [Concomitant]
  7. WARFARIN SODIUM [Concomitant]
  8. LEVOTHYROXINE SODIUM [Concomitant]
  9. AMITRIPTLINE HCL [Concomitant]
  10. SPIRONOLACTONE [Concomitant]
  11. ACTONEL [Concomitant]
  12. ZYRTEC [Concomitant]

REACTIONS (1)
  - ORAL CANDIDIASIS [None]
